FAERS Safety Report 7574600-4 (Version None)
Quarter: 2011Q2

REPORT INFORMATION
  Report Type: 
  Country: None (occurrence: None)
  Receive Date: 20110627
  Receipt Date: 20110609
  Transmission Date: 20111010
  Serious: Yes (Other)
  Sender: FDA-Public Use
  Company Number: KR-BAYER-2011-049852

PATIENT
  Age: 62 Year
  Sex: Male
  Weight: 67 kg

DRUGS (82)
  1. MEK INHIBITOR (DIHYDROXYPROP-DIFLU-METHOXYPHEN-CYCLOPROPA-SULFAMI) [Suspect]
     Dosage: 50 MG, BID
     Route: 048
     Dates: start: 20110219, end: 20110309
  2. SORAFENIB (RAF KINASE INHIBITOR) [Suspect]
     Dosage: 400 MG, QD(PM)
     Route: 048
     Dates: start: 20110318, end: 20110318
  3. SORAFENIB (RAF KINASE INHIBITOR) [Suspect]
     Dosage: 400 MG, QD (PM)
     Route: 048
     Dates: start: 20110404, end: 20110404
  4. SORAFENIB (RAF KINASE INHIBITOR) [Suspect]
     Dosage: 600 MG, QD(200 MG AM/400 MG PM)
     Route: 048
     Dates: start: 20110420, end: 20110421
  5. SORAFENIB (RAF KINASE INHIBITOR) [Suspect]
     Dosage: 400 MG, QD (PM)
     Route: 048
     Dates: start: 20110512, end: 20110512
  6. HEXAMIDINE [Concomitant]
     Indication: STOMATITIS
     Dosage: 100 ML, PRN
     Dates: start: 20110117, end: 20110121
  7. HEXAMIDINE [Concomitant]
     Dosage: 100 ML, PRN
     Dates: start: 20110310, end: 20110401
  8. FESTAL [Concomitant]
     Indication: VOMITING
     Dosage: 1 TBSPN TID
     Route: 048
     Dates: start: 20110117, end: 20110309
  9. MEGACE [Concomitant]
     Dosage: 10 ML, QD
     Route: 048
     Dates: start: 20110422, end: 20110428
  10. MEGACE [Concomitant]
     Dosage: 10 ML, QD
     Route: 048
     Dates: start: 20110602, end: 20110608
  11. CONTRAST MEDIA [Concomitant]
     Dosage: 20 ML, QD
     Route: 042
     Dates: start: 20110217, end: 20110217
  12. LIPID EMULSION [Concomitant]
     Indication: DECREASED APPETITE
     Dosage: 250 ML, QD
     Route: 042
     Dates: start: 20110310, end: 20110310
  13. LIPID EMULSION [Concomitant]
     Dosage: 250 ML, QD
     Dates: start: 20110318, end: 20110318
  14. MEK INHIBITOR (DIHYDROXYPROP-DIFLU-METHOXYPHEN-CYCLOPROPA-SULFAMI) [Suspect]
     Dosage: 50 MG, BID
     Route: 048
     Dates: start: 20110420, end: 20110421
  15. SORAFENIB (RAF KINASE INHIBITOR) [Suspect]
     Indication: HEPATIC NEOPLASM MALIGNANT
     Dosage: 600 MG, QD(200MG AM/400MG PM)
     Route: 048
     Dates: start: 20110107, end: 20110113
  16. SORAFENIB (RAF KINASE INHIBITOR) [Suspect]
     Dosage: 600 MG, QD(200 MG AM/400 MG PM)
     Route: 048
     Dates: start: 20110208, end: 20110216
  17. SORAFENIB (RAF KINASE INHIBITOR) [Suspect]
     Dosage: 400 MG, QD (PM)
     Route: 048
     Dates: start: 20110217, end: 20110217
  18. SORAFENIB (RAF KINASE INHIBITOR) [Suspect]
     Dosage: 600 MG, QD(200 MG AM/400 MG PM)
     Route: 048
     Dates: start: 20110513, end: 20110528
  19. ANALGESICS [Concomitant]
     Indication: ARTHRALGIA
     Dosage: 5 MG, PRN
     Route: 048
     Dates: start: 20100527, end: 20110309
  20. ULTRACET [Concomitant]
     Indication: ARTHRALGIA
     Dosage: 1 TAB TID
     Dates: start: 20101015, end: 20110120
  21. DURAGESIC-100 [Concomitant]
     Indication: ARTHRALGIA
     Dosage: 50 ?G, QOD
     Route: 062
     Dates: start: 20100623
  22. HEXAMIDINE [Concomitant]
     Dosage: 100 ML, BID
     Dates: start: 20110602, end: 20110608
  23. OPTIRAY 300 [Concomitant]
     Dosage: 100 ML, QD
     Route: 042
     Dates: start: 20110218, end: 20110218
  24. GASMOTIN [Concomitant]
     Indication: DECREASED APPETITE
     Dosage: 5 MG, TID
     Route: 048
     Dates: start: 20110310
  25. MEK INHIBITOR (DIHYDROXYPROP-DIFLU-METHOXYPHEN-CYCLOPROPA-SULFAMI) [Suspect]
     Dosage: 50 MG, BID
     Route: 048
     Dates: start: 20110319, end: 20110331
  26. HEXAMIDINE [Concomitant]
     Dosage: 100 ML, QD
     Dates: start: 20110422, end: 20110430
  27. MEGACE [Concomitant]
     Dosage: 10 ML, QD
     Route: 048
     Dates: start: 20110310, end: 20110316
  28. MEGACE [Concomitant]
     Dosage: 10 ML, QD
     Route: 048
     Dates: start: 20110512, end: 20110518
  29. FLUORESCINE [Concomitant]
     Indication: ANGIOGRAM
     Dosage: 500 MG, QD
     Route: 042
     Dates: start: 20110607, end: 20110607
  30. MEK INHIBITOR (DIHYDROXYPROP-DIFLU-METHOXYPHEN-CYCLOPROPA-SULFAMI) [Suspect]
     Dosage: 50 MG, QD
     Route: 048
     Dates: start: 20110128, end: 20110128
  31. MEK INHIBITOR (DIHYDROXYPROP-DIFLU-METHOXYPHEN-CYCLOPROPA-SULFAMI) [Suspect]
     Dosage: 50 MG, QD
     Route: 048
     Dates: start: 20110318, end: 20110318
  32. MEK INHIBITOR (DIHYDROXYPROP-DIFLU-METHOXYPHEN-CYCLOPROPA-SULFAMI) [Suspect]
     Dosage: 80 MG, QD(50 MG AM 30 MG PM)
     Route: 048
     Dates: start: 20110422, end: 20110422
  33. MEK INHIBITOR (DIHYDROXYPROP-DIFLU-METHOXYPHEN-CYCLOPROPA-SULFAMI) [Suspect]
     Dosage: 30 MG, BID
     Route: 048
     Dates: start: 20110423, end: 20110511
  34. MEK INHIBITOR (DIHYDROXYPROP-DIFLU-METHOXYPHEN-CYCLOPROPA-SULFAMI) [Suspect]
     Dosage: 30 MG, QD(PM)
     Route: 048
     Dates: start: 20110512, end: 20110512
  35. MEK INHIBITOR (DIHYDROXYPROP-DIFLU-METHOXYPHEN-CYCLOPROPA-SULFAMI) [Suspect]
     Dosage: 30 MG, BID
     Route: 048
     Dates: start: 20110513, end: 20110528
  36. MEK INHIBITOR (DIHYDROXYPROP-DIFLU-METHOXYPHEN-CYCLOPROPA-SULFAMI) [Suspect]
     Dosage: 30 MG, QD (PM)
     Route: 048
     Dates: start: 20110602, end: 20110602
  37. SORAFENIB (RAF KINASE INHIBITOR) [Suspect]
     Dosage: 600 MG, QD(200MG AM/ 400 MG PM)
     Route: 048
     Dates: start: 20110115, end: 20110120
  38. SORAFENIB (RAF KINASE INHIBITOR) [Suspect]
     Dosage: 600 MG, QD(200MG AM/ 400MG PM)
     Route: 048
     Dates: start: 20110128, end: 20110206
  39. SORAFENIB (RAF KINASE INHIBITOR) [Suspect]
     Dosage: 400 MG, QD (PM)
     Route: 048
     Dates: start: 20110207, end: 20110207
  40. SORAFENIB (RAF KINASE INHIBITOR) [Suspect]
     Dosage: 600 MG, QD (200 MGAM/400 MG PM)
     Route: 048
     Dates: start: 20110219, end: 20110309
  41. SORAFENIB (RAF KINASE INHIBITOR) [Suspect]
     Dosage: 600 MG, QD (200 MG AM/ 400 MG PM)
     Route: 048
     Dates: start: 20110405, end: 20110418
  42. SORAFENIB (RAF KINASE INHIBITOR) [Suspect]
     Dosage: 600 MG, QD
     Route: 048
     Dates: start: 20110422, end: 20110511
  43. AMARYL [Concomitant]
     Indication: DIABETES MELLITUS
     Dosage: 1 TAB BID
     Dates: start: 20101023
  44. MYDRIN P [Concomitant]
     Indication: MYDRIASIS
     Dosage: 10 ML, QD
     Dates: start: 20101224, end: 20101224
  45. HEXAMIDINE [Concomitant]
     Dosage: 100 ML, PRN
     Route: 048
     Dates: start: 20110207, end: 20110218
  46. TRIAMCINOLONE [Concomitant]
     Dosage: 10 G, PRN
     Route: 061
     Dates: start: 20110422
  47. BACTROBAN [Concomitant]
     Indication: EXCORIATION
     Dosage: 10 G, PRN
     Route: 061
     Dates: start: 20110211, end: 20110309
  48. BACTROBAN [Concomitant]
     Dosage: 10 G, PRN
     Route: 061
     Dates: start: 20110404, end: 20110422
  49. HEPATAMINE [Concomitant]
     Dosage: 500 MG, QD
     Route: 042
     Dates: start: 20110404, end: 20110404
  50. MEK INHIBITOR (DIHYDROXYPROP-DIFLU-METHOXYPHEN-CYCLOPROPA-SULFAMI) [Suspect]
     Dosage: 50 MG, BID
     Route: 048
     Dates: start: 20110208, end: 20110216
  51. MEK INHIBITOR (DIHYDROXYPROP-DIFLU-METHOXYPHEN-CYCLOPROPA-SULFAMI) [Suspect]
     Dosage: 50 MG, BID
     Route: 048
     Dates: start: 20110402, end: 20110403
  52. MEK INHIBITOR (DIHYDROXYPROP-DIFLU-METHOXYPHEN-CYCLOPROPA-SULFAMI) [Suspect]
     Dosage: 50 MG, BID
     Route: 048
     Dates: start: 20110405, end: 20110418
  53. METOCLOPRAMIDE [Concomitant]
     Indication: VOMITING
     Dosage: 2.5 MG, TID
     Route: 048
     Dates: start: 20110117
  54. METOCLOPRAMIDE [Concomitant]
     Dosage: 2.5 MG, TID
     Route: 048
     Dates: start: 20110318, end: 20110417
  55. MEGACE [Concomitant]
     Indication: PROPHYLAXIS
     Dosage: 10 ML, QD
     Route: 048
     Dates: start: 20101213, end: 20101219
  56. CONTRAST MEDIA [Concomitant]
     Dosage: 10 ML, QD
     Route: 042
     Dates: start: 20110401, end: 20110401
  57. OPTIRAY 300 [Concomitant]
     Indication: COMPUTERISED TOMOGRAM
     Dosage: 100 ML, QD
     Route: 042
     Dates: start: 20101228, end: 20101228
  58. MEK INHIBITOR (DIHYDROXYPROP-DIFLU-METHOXYPHEN-CYCLOPROPA-SULFAMI) [Suspect]
     Dosage: 50 MG, BID
     Route: 048
     Dates: start: 20110129, end: 20110206
  59. MEK INHIBITOR (DIHYDROXYPROP-DIFLU-METHOXYPHEN-CYCLOPROPA-SULFAMI) [Suspect]
     Dosage: 50 MG, QD
     Route: 048
     Dates: start: 20110404, end: 20110404
  60. SORAFENIB (RAF KINASE INHIBITOR) [Suspect]
     Dosage: 400 MG, QD (PM)
     Route: 048
     Dates: start: 20110128, end: 20110128
  61. MAGNESIUM OXIDE [Concomitant]
     Indication: CONSTIPATION PROPHYLAXIS
     Dosage: 500 MG, BID
     Route: 048
     Dates: start: 20101130
  62. MEGACE [Concomitant]
     Dosage: 10 ML, QD
     Route: 048
     Dates: start: 20110401, end: 20110407
  63. LIPID EMULSION [Concomitant]
     Dosage: 250 ML, QD
     Route: 042
     Dates: start: 20110404, end: 20110404
  64. HEPATAMINE [Concomitant]
     Indication: PARENTERAL NUTRITION
     Dosage: 500 MG, QD
     Route: 042
     Dates: start: 20110318, end: 20110318
  65. MEK INHIBITOR (DIHYDROXYPROP-DIFLU-METHOXYPHEN-CYCLOPROPA-SULFAMI) [Suspect]
     Dosage: 50 MG, QD
     Route: 048
     Dates: start: 20110217, end: 20110217
  66. SORAFENIB (RAF KINASE INHIBITOR) [Suspect]
     Dosage: 600 MG, QD(200 MG AM/ 400 MG PM)
     Route: 048
     Dates: start: 20110319, end: 20110331
  67. SORAFENIB (RAF KINASE INHIBITOR) [Suspect]
     Dosage: 600 MG, QD (200 MG AM/400 MG PM)
     Route: 048
     Dates: start: 20110402, end: 20110403
  68. MYDRIN P [Concomitant]
     Dosage: 1 ML, QD
     Route: 061
     Dates: start: 20110218, end: 20110218
  69. MYDRIN P [Concomitant]
     Dosage: 1 ML, QD
     Route: 061
     Dates: start: 20110607, end: 20110607
  70. METOCLOPRAMIDE [Concomitant]
     Dosage: 2.5 MG, TID
     Route: 048
     Dates: start: 20110422
  71. HEXAMIDINE [Concomitant]
     Dosage: 100 ML, QD
     Dates: start: 20110512, end: 20110524
  72. LACTULOSE [Concomitant]
     Indication: CONSTIPATION PROPHYLAXIS
     Dosage: 20 ML, TID
     Route: 048
     Dates: start: 20110218, end: 20110310
  73. UREA [Concomitant]
     Indication: EXCORIATION
     Dosage: 30 G, PRN
     Route: 061
     Dates: start: 20110404, end: 20110422
  74. ULTRAVIST 150 [Concomitant]
     Indication: COMPUTERISED TOMOGRAM
     Dosage: 500 ML, QD
     Route: 042
     Dates: start: 20110404, end: 20110404
  75. MEK INHIBITOR (DIHYDROXYPROP-DIFLU-METHOXYPHEN-CYCLOPROPA-SULFAMI) [Suspect]
     Indication: HEPATIC NEOPLASM MALIGNANT
     Dosage: 50 MG, BID
     Route: 048
     Dates: start: 20110107, end: 20110113
  76. MEK INHIBITOR (DIHYDROXYPROP-DIFLU-METHOXYPHEN-CYCLOPROPA-SULFAMI) [Suspect]
     Dosage: 50 MG, BID
     Route: 048
     Dates: start: 20110115, end: 20110120
  77. MEK INHIBITOR (DIHYDROXYPROP-DIFLU-METHOXYPHEN-CYCLOPROPA-SULFAMI) [Suspect]
     Dosage: 50 MG, QD
     Route: 048
     Dates: start: 20110207, end: 20110207
  78. URSODIOL [Concomitant]
     Indication: HEPATITIS B
     Dosage: 200 MG, BID
     Route: 048
     Dates: start: 20100527
  79. THIAMINE [Concomitant]
     Indication: HEPATITIS B
     Dosage: 20 MG, BID
     Route: 048
     Dates: start: 20100527
  80. TRIAMCINOLONE [Concomitant]
     Indication: STOMATITIS
     Dosage: 1ML
     Route: 061
     Dates: start: 20110121, end: 20110309
  81. NORVASC [Concomitant]
     Indication: HYPERTENSION
     Dosage: 5 MG, QD
     Route: 048
     Dates: start: 20110207
  82. CONTRAST MEDIA [Concomitant]
     Indication: NUCLEAR MAGNETIC RESONANCE IMAGING
     Dosage: 20 ML, QD
     Route: 042
     Dates: start: 20101224, end: 20101224

REACTIONS (1)
  - RETINAL VASCULAR DISORDER [None]
